FAERS Safety Report 9207738 (Version 1)
Quarter: 2013Q2

REPORT INFORMATION
  Report Type: Spontaneous
  Country: FR (occurrence: FR)
  Receive Date: 20130403
  Receipt Date: 20130403
  Transmission Date: 20140414
  Serious: Yes (Hospitalization, Other)
  Sender: FDA-Public Use
  Company Number: FR-PFIZER INC-2013101398

PATIENT
  Age: 77 Year
  Sex: Male

DRUGS (11)
  1. TAHOR [Suspect]
     Dosage: 80 MG, UNK
     Route: 048
  2. EUPANTOL [Suspect]
     Dosage: UNK
     Route: 048
  3. ASPEGIC [Suspect]
     Dosage: 1 G, UNK
     Route: 048
     Dates: start: 20130129
  4. PLAVIX [Suspect]
     Dosage: 75 MG, UNK
     Route: 048
  5. LOXEN [Suspect]
     Dosage: 10 MG/ML, UNK
     Route: 042
  6. LOVENOX [Suspect]
     Dosage: UNK
     Route: 058
  7. LASILIX [Suspect]
     Dosage: UNK
     Route: 042
  8. UMULINE RAPIDE [Suspect]
     Dosage: UNK
     Route: 058
  9. TAZOCILLINE [Concomitant]
     Dosage: UNK
     Dates: start: 20130130
  10. PHLOROGLUCINOL [Concomitant]
     Dosage: ON DEMAND
     Dates: start: 20130129
  11. TRAMADOL [Concomitant]
     Dosage: ON DEMAND
     Dates: start: 20130129

REACTIONS (11)
  - Rash [Not Recovered/Not Resolved]
  - Eosinophilia [Not Recovered/Not Resolved]
  - Hepatocellular injury [Not Recovered/Not Resolved]
  - Pyrexia [Unknown]
  - Confusional state [Unknown]
  - Somnolence [Unknown]
  - Abdominal pain [Unknown]
  - Respiratory distress [Unknown]
  - Renal failure [Unknown]
  - Blood immunoglobulin G [Unknown]
  - Monocyte count increased [Unknown]
